FAERS Safety Report 8977453 (Version 1)
Quarter: 2012Q4

REPORT INFORMATION
  Report Type: 
  Country: GB (occurrence: GB)
  Receive Date: 20121219
  Receipt Date: 20121219
  Transmission Date: 20130627
  Serious: Yes (Other)
  Sender: FDA-Public Use
  Company Number: GB-PFIZER INC-2012314651

PATIENT
  Age: 75 Year
  Sex: Female
  Weight: 45.36 kg

DRUGS (39)
  1. AZITHROMYCIN [Suspect]
     Indication: PROPHYLAXIS
     Dosage: UNK
     Dates: start: 20120820
  2. MANEVAC [Concomitant]
     Dosage: UNK
     Dates: start: 20120611
  3. FUROSEMIDE [Concomitant]
     Dosage: UNK
     Dates: start: 20120712
  4. AMITRIPTYLINE HYDROCHLORIDE [Concomitant]
     Dosage: UNK
     Dates: start: 20120731, end: 20121126
  5. CALCIUM CARBONATE [Concomitant]
     Dosage: UNK
     Dates: start: 20120731
  6. COLISTIMETHATE SODIUM [Concomitant]
     Dosage: UNK
     Dates: start: 20120731
  7. CORACTEN [Concomitant]
     Dosage: UNK
     Dates: start: 20120731, end: 20120830
  8. CORACTEN [Concomitant]
     Dosage: UNK
     Dates: start: 20120924, end: 20121128
  9. FLIXONASE [Concomitant]
     Dosage: UNK
     Dates: start: 20120731, end: 20121126
  10. GLYCEROL [Concomitant]
     Dosage: UNK
     Dates: start: 20120731
  11. OMEPRAZOLE [Concomitant]
     Dosage: UNK
     Dates: start: 20120731, end: 20121126
  12. SENNA [Concomitant]
     Dosage: UNK
     Dates: start: 20120731
  13. BETAMETHASONE SODIUM PHOSPHATE [Concomitant]
     Dosage: UNK
     Dates: start: 20120820, end: 20121126
  14. BUPRENORPHINE [Concomitant]
     Dosage: UNK
     Dates: start: 20120820, end: 20121126
  15. BECLOMETASONE [Concomitant]
     Dosage: UNK
     Dates: start: 20120822, end: 20120829
  16. BECLOMETASONE [Concomitant]
     Dosage: UNK
     Dates: start: 20120924, end: 20121001
  17. BECLOMETASONE [Concomitant]
     Dosage: UNK
     Dates: start: 20121029, end: 20121105
  18. CARMELLOSE [Concomitant]
     Dosage: UNK
     Dates: start: 20120822, end: 20121017
  19. DIFFLAM [Concomitant]
     Dosage: UNK
     Dates: start: 20120822, end: 20121124
  20. LACTULOSE [Concomitant]
     Dosage: UNK
     Dates: start: 20120822, end: 20121124
  21. PARACETAMOL [Concomitant]
     Dosage: UNK
     Dates: start: 20120822, end: 20121123
  22. SODIUM CHLORIDE [Concomitant]
     Dosage: UNK
     Dates: start: 20120822, end: 20121121
  23. GAVISCON ADVANCE [Concomitant]
     Dosage: UNK
     Dates: start: 20120910, end: 20120913
  24. GAVISCON ADVANCE [Concomitant]
     Dosage: UNK
     Dates: start: 20120924, end: 20120927
  25. GAVISCON ADVANCE [Concomitant]
     Dosage: UNK
     Dates: start: 20121029, end: 20121101
  26. NYSTATIN [Concomitant]
     Dosage: UNK
     Dates: start: 20120910, end: 20120912
  27. NYSTATIN [Concomitant]
     Dosage: UNK
     Dates: start: 20120924, end: 20120926
  28. NYSTATIN [Concomitant]
     Dosage: UNK
     Dates: start: 20121010, end: 20121012
  29. NYSTATIN [Concomitant]
     Dosage: UNK
     Dates: start: 20121029, end: 20121031
  30. SALBUTAMOL [Concomitant]
     Dosage: UNK
     Dates: start: 20120924, end: 20120929
  31. SALBUTAMOL [Concomitant]
     Dosage: UNK
     Dates: start: 20121010, end: 20121015
  32. SALBUTAMOL [Concomitant]
     Dosage: UNK
     Dates: start: 20121108, end: 20121113
  33. SOFRADEX [Concomitant]
     Dosage: UNK
     Dates: start: 20120925, end: 20121009
  34. FLUCLOXACILLIN [Concomitant]
     Dosage: UNK
     Dates: start: 20121005, end: 20121012
  35. DIPROBASE CREAM [Concomitant]
     Dosage: UNK
     Dates: start: 20121010, end: 20121011
  36. EPADERM [Concomitant]
     Dosage: UNK
     Dates: start: 20121010, end: 20121011
  37. SILVER SULFADIAZINE / ZINC SULFATE [Concomitant]
     Dosage: UNK
     Dates: start: 20121108
  38. CALCIPOTRIOL [Concomitant]
     Dosage: UNK
     Dates: start: 20121108, end: 20121113
  39. CLARITHROMYCIN [Concomitant]
     Dosage: UNK
     Dates: start: 20121126

REACTIONS (1)
  - Wheezing [Recovering/Resolving]
